FAERS Safety Report 8775416 (Version 2)
Quarter: 2013Q1

REPORT INFORMATION
  Report Type: Spontaneous
  Country: JP (occurrence: JP)
  Receive Date: 20120910
  Receipt Date: 20130124
  Transmission Date: 20140127
  Serious: Yes (Death, Other)
  Sender: FDA-Public Use
  Company Number: JP-ROCHE-1119969

PATIENT
  Age: 64 Year
  Sex: Male
  Weight: 81 kg

DRUGS (4)
  1. ACTEMRA [Suspect]
     Indication: CASTLEMAN^S DISEASE
     Dosage: DOSAGE IS UNCERTAIN.
     Route: 041
     Dates: start: 20120815, end: 20120815
  2. DEXAMETHASONE [Concomitant]
     Route: 065
     Dates: start: 20120822
  3. CYCLOSPORINE [Concomitant]
     Route: 065
     Dates: start: 20120822
  4. ETOPOSIDE [Concomitant]
     Route: 065
     Dates: start: 20120822

REACTIONS (4)
  - Histiocytosis haematophagic [Fatal]
  - Blood pressure decreased [Not Recovered/Not Resolved]
  - Loss of consciousness [Not Recovered/Not Resolved]
  - Cardio-respiratory arrest [Fatal]
